FAERS Safety Report 8480331-9 (Version None)
Quarter: 2012Q2

REPORT INFORMATION
  Report Type: 
  Country: None (occurrence: None)
  Receive Date: 20120630
  Receipt Date: 20120620
  Transmission Date: 20120825
  Serious: Yes (Other)
  Sender: FDA-Public Use
  Company Number: FR-TEVA-337839ISR

PATIENT
  Sex: Male

DRUGS (7)
  1. XANAX 0.5 MG, SCORED TABLET [Concomitant]
     Dosage: 2 MILLIGRAM;
     Route: 048
  2. AERIUS 5 MG, COATED TABLET [Concomitant]
     Dosage: 5 MILLIGRAM;
  3. CIMETIDINE [Suspect]
     Indication: PEPTIC ULCER
     Dosage: 600 MILLIGRAM;
     Route: 048
     Dates: start: 20111129, end: 20120301
  4. CIMETIDINE [Suspect]
     Dosage: 1000 MILLIGRAM;
     Route: 048
     Dates: start: 20120301
  5. OROPERIDYS [Concomitant]
     Dosage: 3 DOSAGE FORMS;
     Route: 048
  6. TAREG 80 MG, COATED SCORED TABLET [Concomitant]
     Indication: HYPERTENSION
     Dosage: 80 MILLIGRAM;
     Route: 048
  7. MONO-TILDIEM 200 MG, CAPSULE [Concomitant]
     Indication: HYPERTENSION
     Dosage: 200 MILLIGRAM;
     Route: 048

REACTIONS (9)
  - URINARY TRACT INFECTION [None]
  - ABDOMINAL DISTENSION [None]
  - WEIGHT DECREASED [None]
  - ASTHENIA [None]
  - WHITE BLOOD CELL COUNT INCREASED [None]
  - C-REACTIVE PROTEIN INCREASED [None]
  - DECREASED APPETITE [None]
  - ERECTILE DYSFUNCTION [None]
  - GASTROOESOPHAGEAL REFLUX DISEASE [None]
